FAERS Safety Report 10229226 (Version 2)
Quarter: 2014Q3

REPORT INFORMATION
  Report Type: Report from Study
  Country: JP (occurrence: JP)
  Receive Date: 20140611
  Receipt Date: 20140702
  Transmission Date: 20150326
  Serious: Yes (Death)
  Sender: FDA-Public Use
  Company Number: JP-UCBSA-2014000258

PATIENT
  Age: 58 Year
  Sex: Female
  Weight: 63 kg

DRUGS (2)
  1. LEVETIRACETAM. [Suspect]
     Active Substance: LEVETIRACETAM
     Indication: SIMPLE PARTIAL SEIZURES
     Dosage: 500 MG, 2X/DAY (BID)
     Route: 048
     Dates: start: 20121023, end: 20130323
  2. PHENOBARBITAL. [Concomitant]
     Active Substance: PHENOBARBITAL
     Indication: SIMPLE PARTIAL SEIZURES
     Dosage: 30 MG, UNK
     Route: 048
     Dates: start: 20121023, end: 20130323

REACTIONS (2)
  - Gamma-glutamyltransferase increased [Unknown]
  - Brain cancer metastatic [Fatal]

NARRATIVE: CASE EVENT DATE: 20121109
